FAERS Safety Report 7594861-5 (Version None)
Quarter: 2011Q2

REPORT INFORMATION
  Report Type: 
  Country: None (occurrence: None)
  Receive Date: 20110615
  Receipt Date: 20101103
  Transmission Date: 20111010
  Serious: Yes (Other)
  Sender: FDA-Public Use
  Company Number: WAES 1011USA00490

PATIENT
  Age: 57 Year
  Sex: Female

DRUGS (3)
  1. CRESTOR [Concomitant]
  2. COZAAR [Suspect]
     Indication: HYPERTENSION
     Dosage: 50 MG/BID/PO
     Route: 048
     Dates: start: 20080101, end: 20100801
  3. COZAAR [Suspect]
     Indication: HYPERTENSION
     Dosage: 50 MG/BID/PO
     Route: 048
     Dates: start: 20100901

REACTIONS (2)
  - RASH [None]
  - CEREBROVASCULAR ACCIDENT [None]
